FAERS Safety Report 7176360-8 (Version None)
Quarter: 2010Q4

REPORT INFORMATION
  Report Type: 
  Country: None (occurrence: None)
  Receive Date: 20101215
  Receipt Date: 20101215
  Transmission Date: 20110411
  Serious: Yes (Other)
  Sender: FDA-Public Use
  Company Number: None

PATIENT
  Age: 76 Year
  Sex: Female

DRUGS (12)
  1. PROCRIT [Suspect]
     Indication: RENAL FAILURE CHRONIC
     Dosage: 60,000 UNITS UNDER THE SKIN WEEKLY
     Dates: start: 20091201
  2. SIMVASTATIN [Concomitant]
  3. CITALOPRAM [Concomitant]
  4. HUMULIN R [Concomitant]
  5. LORAZEPAM [Concomitant]
  6. OMEPRAZOLE [Concomitant]
  7. HYDROCODONE BITARTRATE + ACETAMINOPHEN [Concomitant]
  8. VIT D2 [Concomitant]
  9. VIT B12 [Concomitant]
  10. DIOVAN [Concomitant]
  11. MIDOCRINE [Concomitant]
  12. VESICARE [Concomitant]

REACTIONS (2)
  - LEG AMPUTATION [None]
  - PRODUCT QUALITY ISSUE [None]
